FAERS Safety Report 24188257 (Version 2)
Quarter: 2024Q3

REPORT INFORMATION
  Report Type: Spontaneous
  Country: RO (occurrence: RO)
  Receive Date: 20240808
  Receipt Date: 20240812
  Transmission Date: 20241016
  Serious: Yes (Hospitalization, Other)
  Sender: SANOFI AVENTIS
  Company Number: RO-MLMSERVICE-20240729-PI144859-00152-1

PATIENT
  Sex: Female

DRUGS (6)
  1. OXALIPLATIN [Suspect]
     Active Substance: OXALIPLATIN
     Indication: Metastases to liver
     Dosage: UNK
     Dates: start: 2016
  2. OXALIPLATIN [Suspect]
     Active Substance: OXALIPLATIN
     Indication: Rectal adenocarcinoma
  3. CAPECITABINE [Suspect]
     Active Substance: CAPECITABINE
     Indication: Rectal adenocarcinoma
     Dosage: UNK
     Dates: start: 2016
  4. CAPECITABINE [Suspect]
     Active Substance: CAPECITABINE
     Indication: Metastases to liver
  5. FLUOROURACIL [Suspect]
     Active Substance: FLUOROURACIL
     Indication: Rectal adenocarcinoma
     Dosage: UNK, 4? FUFOL
     Dates: start: 2014
  6. LEUCOVORIN [Suspect]
     Active Substance: LEUCOVORIN\LEUCOVORIN CALCIUM
     Indication: Rectal adenocarcinoma
     Dosage: UNK, 4? FUFOL
     Dates: start: 2014

REACTIONS (10)
  - Venoocclusive liver disease [Recovering/Resolving]
  - Varices oesophageal [Recovering/Resolving]
  - Portal hypertensive gastropathy [Recovering/Resolving]
  - Fatigue [Recovering/Resolving]
  - Abdominal tenderness [Recovering/Resolving]
  - Hepatosplenomegaly [Recovering/Resolving]
  - Thrombocytopenia [Recovering/Resolving]
  - Abdominal pain upper [Recovering/Resolving]
  - Upper gastrointestinal haemorrhage [Recovering/Resolving]
  - Ascites [Recovering/Resolving]

NARRATIVE: CASE EVENT DATE: 20200101
